FAERS Safety Report 12660005 (Version 1)
Quarter: 2016Q3

REPORT INFORMATION
  Report Type: Spontaneous
  Country: NO (occurrence: NO)
  Receive Date: 20160817
  Receipt Date: 20160817
  Transmission Date: 20161109
  Serious: Yes (Other)
  Sender: FDA-Public Use
  Company Number: NO-PFIZER INC-2016154280

PATIENT
  Age: 69 Year
  Sex: Male

DRUGS (10)
  1. LEVAXIN [Concomitant]
     Active Substance: LEVOTHYROXINE SODIUM
     Indication: METABOLIC DISORDER
     Dosage: UNK
  2. HUMIRA [Suspect]
     Active Substance: ADALIMUMAB
     Indication: ANKYLOSING SPONDYLITIS
     Dosage: 1 DF (40MG/0.8ML), 2X/WEEK
     Route: 058
     Dates: start: 2011, end: 2014
  3. HUMIRA [Suspect]
     Active Substance: ADALIMUMAB
     Dosage: ONCE (40MG/0.8ML) EVERY 4/5/6 WEEKS
     Dates: start: 2016
  4. ENBREL [Suspect]
     Active Substance: ETANERCEPT
     Dosage: UNK
  5. HUMIRA [Suspect]
     Active Substance: ADALIMUMAB
     Dosage: 1 DF (40MG/0.8ML), 2X/WEEK
     Route: 058
     Dates: start: 201601, end: 20160215
  6. CORTISONE [Suspect]
     Active Substance: CORTISONE\HYDROCORTISONE
     Dosage: UNK
     Route: 048
  7. LOSARTAN. [Concomitant]
     Active Substance: LOSARTAN
     Indication: BLOOD PRESSURE MEASUREMENT
     Dosage: UNK
  8. COLLARGEN PLUS [Concomitant]
     Dosage: 2X/DAY
  9. METHOTREXATE SODIUM. [Suspect]
     Active Substance: METHOTREXATE SODIUM
     Dosage: UNK
  10. HUMIRA [Suspect]
     Active Substance: ADALIMUMAB
     Dosage: UNK
     Route: 058
     Dates: end: 2015

REACTIONS (9)
  - Femoral neck fracture [Unknown]
  - Rash [Unknown]
  - Drug ineffective [Unknown]
  - White blood cell count decreased [Not Recovered/Not Resolved]
  - Drug resistance [Unknown]
  - Flatulence [Unknown]
  - Swelling [Unknown]
  - Infection [Unknown]
  - Rheumatic disorder [Unknown]
